FAERS Safety Report 9729599 (Version 1)
Quarter: 2013Q4

REPORT INFORMATION
  Report Type: Spontaneous
  Country: GB (occurrence: GB)
  Receive Date: 20131204
  Receipt Date: 20131204
  Transmission Date: 20140711
  Serious: Yes (Other)
  Sender: FDA-Public Use
  Company Number: GB-ABBVIE-13P-167-1175266-00

PATIENT
  Age: 43 Year
  Sex: Male
  Weight: 93.4 kg

DRUGS (2)
  1. HUMIRA [Suspect]
     Indication: PSORIASIS
     Route: 058
     Dates: start: 20091113, end: 20131018
  2. AMLODIPINE [Concomitant]
     Indication: HYPERTENSION

REACTIONS (1)
  - Blood creatinine increased [Unknown]
